FAERS Safety Report 21509900 (Version 5)
Quarter: 2023Q1

REPORT INFORMATION
  Report Type: Spontaneous
  Country: CA (occurrence: CA)
  Receive Date: 20221026
  Receipt Date: 20230227
  Transmission Date: 20230417
  Serious: Yes (Other)
  Sender: FDA-Public Use
  Company Number: CA-PFIZER INC-202101023193

PATIENT
  Age: 70 Year
  Sex: Female
  Weight: 77 kg

DRUGS (6)
  1. RUXIENCE [Suspect]
     Active Substance: RITUXIMAB-PVVR
     Indication: Microscopic polyangiitis
     Dosage: 500 MG EVERY 6 MONTH
     Route: 042
     Dates: start: 20200929
  2. RUXIENCE [Suspect]
     Active Substance: RITUXIMAB-PVVR
     Indication: Vasculitis
     Dosage: 500 MG EVERY 6 MONTH
     Route: 042
     Dates: start: 20210331
  3. RUXIENCE [Suspect]
     Active Substance: RITUXIMAB-PVVR
     Dosage: 500 MG EVERY 6 MONTH
     Route: 042
  4. RUXIENCE [Suspect]
     Active Substance: RITUXIMAB-PVVR
     Dosage: 500 MG EVERY 6 MONTH
     Route: 042
     Dates: start: 20220427
  5. IMURAN [Concomitant]
     Active Substance: AZATHIOPRINE
     Dosage: UNK
     Dates: end: 20221119
  6. PREDNISONE [Concomitant]
     Active Substance: PREDNISONE
     Dosage: 3 MG

REACTIONS (8)
  - Pneumonia bacterial [Unknown]
  - Diverticulitis [Not Recovered/Not Resolved]
  - Intestinal mass [Unknown]
  - Myalgia [Not Recovered/Not Resolved]
  - Abdominal pain [Not Recovered/Not Resolved]
  - Chills [Not Recovered/Not Resolved]
  - Inflammation [Not Recovered/Not Resolved]
  - Off label use [Unknown]

NARRATIVE: CASE EVENT DATE: 20220101
